FAERS Safety Report 9277928 (Version 1)
Quarter: 2013Q2

REPORT INFORMATION
  Report Type: Spontaneous
  Country: US (occurrence: None)
  Receive Date: 20130503
  Receipt Date: 20130503
  Transmission Date: 20140414
  Serious: Yes (Other)
  Sender: FDA-Public Use
  Company Number: None

PATIENT
  Age: 57 Year
  Sex: Female
  Weight: 85 kg

DRUGS (2)
  1. ADO-TRASTUZUMAB EMTANSINE [Suspect]
     Indication: BREAST CANCER METASTATIC
     Dosage: Q21DAY
     Route: 042
     Dates: start: 20130403, end: 20130430
  2. ONDANSETRON [Concomitant]

REACTIONS (5)
  - Throat irritation [None]
  - Cough [None]
  - Lacrimation increased [None]
  - Eye irritation [None]
  - Blood pressure increased [None]
